FAERS Safety Report 8177735-0 (Version None)
Quarter: 2012Q1

REPORT INFORMATION
  Report Type: 
  Country: None (occurrence: None)
  Receive Date: 20120301
  Receipt Date: 20120222
  Transmission Date: 20120608
  Serious: Yes (Hospitalization)
  Sender: FDA-Public Use
  Company Number: US-BAYER-2011-105754

PATIENT
  Age: 46 Year
  Sex: Female
  Weight: 58 kg

DRUGS (10)
  1. FLONASE [Concomitant]
  2. ULTRAM [Concomitant]
  3. YAZ [Suspect]
     Indication: CONTRACEPTION
     Dosage: UNK
     Dates: start: 20080901, end: 20091001
  4. PRILOSEC [Concomitant]
     Indication: GASTRIC DISORDER
     Dosage: UNK
     Dates: start: 20060101
  5. ASPIRIN [Concomitant]
  6. NABUMETONE [Concomitant]
     Indication: BACK PAIN
     Dosage: 500 MG, BID
     Dates: start: 20090901
  7. NABUMETONE [Concomitant]
     Indication: MUSCULOSKELETAL CHEST PAIN
  8. DROSPIRENONE AND ETHINYL ESTRADIOL [Suspect]
     Indication: CONTRACEPTION
     Dosage: UNK
     Dates: start: 20080901, end: 20091001
  9. ACCOLATE [Concomitant]
     Indication: ASTHMA
     Dosage: 20 MG, UNK
     Dates: start: 20050101
  10. SEREVANT INHALER [Concomitant]
     Indication: ASTHMA
     Dosage: UNK
     Dates: start: 20060101

REACTIONS (6)
  - DEEP VEIN THROMBOSIS [None]
  - OEDEMA PERIPHERAL [None]
  - INJURY [None]
  - PAIN IN EXTREMITY [None]
  - PULMONARY EMBOLISM [None]
  - PAIN [None]
